FAERS Safety Report 5133072-X (Version None)
Quarter: 2006Q4

REPORT INFORMATION
  Report Type: 
  Country: None (occurrence: None)
  Receive Date: 20061017
  Receipt Date: 20061004
  Transmission Date: 20070319
  Serious: Yes (Life-Threatening, Other)
  Sender: FDA-Public Use
  Company Number: 2006113111

PATIENT
  Age: 82 Year
  Sex: Male
  Weight: 69 kg

DRUGS (1)
  1. LYRICA [Suspect]
     Indication: NEURALGIA
     Dosage: 50 MG, ORAL
     Route: 048
     Dates: start: 20060907

REACTIONS (2)
  - CONDITION AGGRAVATED [None]
  - RENAL FAILURE [None]
